FAERS Safety Report 20425451 (Version 1)
Quarter: 2022Q1

REPORT INFORMATION
  Report Type: Spontaneous
  Country: AU (occurrence: AU)
  Receive Date: 20220204
  Receipt Date: 20220204
  Transmission Date: 20220424
  Serious: No
  Sender: FDA-Public Use
  Company Number: AU-EXELIXIS-CABO-21038717

PATIENT
  Age: 54 Year
  Sex: Male

DRUGS (1)
  1. CABOMETYX [Suspect]
     Active Substance: CABOZANTINIB S-MALATE
     Indication: Product used for unknown indication

REACTIONS (5)
  - Myalgia [Unknown]
  - Pyrexia [Unknown]
  - Rash maculo-papular [Unknown]
  - Abdominal pain upper [Unknown]
  - Fatigue [Unknown]
